FAERS Safety Report 7776964-5 (Version None)
Quarter: 2011Q3

REPORT INFORMATION
  Report Type: 
  Country: None (occurrence: None)
  Receive Date: 20110923
  Receipt Date: 20110923
  Transmission Date: 20111222
  Serious: No
  Sender: FDA-Public Use
  Company Number: None

PATIENT
  Sex: Female
  Weight: 46.25 kg

DRUGS (15)
  1. VITAMIN D [Concomitant]
  2. PANTOPRAZOLE [Concomitant]
  3. ALPRAZOLAM [Concomitant]
  4. OXYCONTIN [Concomitant]
  5. OXYCODONE [Concomitant]
  6. TRAZODONE HYDROCHLORIDE [Concomitant]
  7. CALCIUM CARBONATE [Concomitant]
  8. FEMARA [Concomitant]
  9. VENLAFAXINE HYDROCHLORIDE [Concomitant]
  10. HYDROMORPHONE HCL [Concomitant]
  11. VITAMIN E [Concomitant]
  12. FISH OIL [Concomitant]
  13. M.V.I. [Concomitant]
  14. FLAXSEED OIL [Concomitant]
  15. XELODA [Suspect]
     Dosage: 1500MG BID PO
     Route: 048
     Dates: start: 20110805, end: 20110921

REACTIONS (2)
  - RHINITIS [None]
  - FATIGUE [None]
